FAERS Safety Report 5033476-X (Version None)
Quarter: 2006Q2

REPORT INFORMATION
  Report Type: 
  Country: None (occurrence: None)
  Receive Date: 20060518
  Receipt Date: 20051229
  Transmission Date: 20061013
  Serious: Yes (Other)
  Sender: FDA-Public Use
  Company Number: 2006000769

PATIENT
  Age: 22 Year
  Sex: Female
  Weight: 80.2867 kg

DRUGS (1)
  1. DEPO-PROVERA [Suspect]
     Indication: CONTRACEPTION
     Dosage: 150 MG (150 MG,SINGLE INJECTION)
     Dates: start: 20051003, end: 20051003

REACTIONS (7)
  - ALOPECIA [None]
  - BREAST TENDERNESS [None]
  - HEADACHE [None]
  - MENORRHAGIA [None]
  - MUSCLE SPASMS [None]
  - MYALGIA [None]
  - WEIGHT INCREASED [None]
